FAERS Safety Report 5714973-8 (Version None)
Quarter: 2008Q2

REPORT INFORMATION
  Report Type: 
  Country: None (occurrence: None)
  Receive Date: 20080423
  Receipt Date: 20080415
  Transmission Date: 20081010
  Serious: Yes (Other)
  Sender: FDA-Public Use
  Company Number: JP-SANOFI-SYNTHELABO-A01200804388

PATIENT
  Sex: Female

DRUGS (5)
  1. PYDOXAL [Concomitant]
     Route: 048
     Dates: start: 20080320, end: 20080409
  2. FLUOROURACIL [Suspect]
     Dosage: 400 MG/M2 IN BOLUS FOLLOWED BY 2400 MG/M2 AS CONTINUOUS INFUSION
     Route: 042
     Dates: start: 20080319, end: 20080319
  3. ELPLAT [Suspect]
     Indication: COLON CANCER
     Route: 041
     Dates: start: 20080319, end: 20080319
  4. ISOVORIN [Suspect]
     Route: 041
     Dates: start: 20080319, end: 20080319
  5. PANTOSIN [Concomitant]
     Route: 048
     Dates: start: 20080320, end: 20080409

REACTIONS (1)
  - RHABDOMYOLYSIS [None]
